FAERS Safety Report 7211428-9 (Version None)
Quarter: 2011Q1

REPORT INFORMATION
  Report Type: 
  Country: None (occurrence: None)
  Receive Date: 20110105
  Receipt Date: 20101226
  Transmission Date: 20110831
  Serious: Yes (Life-Threatening, Hospitalization)
  Sender: FDA-Public Use
  Company Number: AU-MPIJNJ-2010-04097

PATIENT

DRUGS (9)
  1. VELCADE [Suspect]
     Dosage: 3.5 MG, UNK
     Route: 042
     Dates: start: 20100714, end: 20100714
  2. DEXAMETHASONE [Suspect]
     Dosage: 40 MG, UNK
     Route: 042
     Dates: start: 20100715, end: 20100715
  3. VELCADE [Suspect]
     Indication: MULTIPLE MYELOMA
     Dosage: 3.5 MG, UNK
     Route: 042
  4. VELCADE [Suspect]
     Dosage: 3.5 MG, UNK
     Route: 042
     Dates: start: 20100713, end: 20100713
  5. DEXAMETHASONE [Suspect]
     Dosage: 40 MG, UNK
     Route: 042
     Dates: start: 20100714, end: 20100714
  6. VELCADE [Suspect]
     Dosage: 3.5 MG, UNK
     Route: 042
     Dates: start: 20100715, end: 20100715
  7. DEXAMETHASONE [Suspect]
     Dosage: 40 MG, UNK
     Route: 042
     Dates: start: 20100713, end: 20100713
  8. DEXAMETHASONE [Suspect]
     Indication: MULTIPLE MYELOMA
     Dosage: 40 MG, UNK
     Route: 042
     Dates: start: 20100703
  9. VELCADE [Suspect]
     Dosage: 3.5 MG, UNK
     Route: 042
     Dates: start: 20100708

REACTIONS (4)
  - NEUROPATHY PERIPHERAL [None]
  - OVERDOSE [None]
  - DIARRHOEA [None]
  - INAPPROPRIATE SCHEDULE OF DRUG ADMINISTRATION [None]
